FAERS Safety Report 14205802 (Version 2)
Quarter: 2017Q4

REPORT INFORMATION
  Report Type: Spontaneous
  Country: US (occurrence: US)
  Receive Date: 20171120
  Receipt Date: 20171218
  Transmission Date: 20180321
  Serious: No
  Sender: FDA-Public Use
  Company Number: US-GILEAD-2017-0305615

PATIENT
  Age: 35 Year
  Sex: Male
  Weight: 104.31 kg

DRUGS (3)
  1. TRUVADA [Suspect]
     Active Substance: EMTRICITABINE\TENOFOVIR DISOPROXIL FUMARATE
     Indication: PROPHYLAXIS AGAINST HIV INFECTION
     Dosage: 200/300, UNK
     Route: 048
     Dates: start: 20150701, end: 20171109
  2. TRUVADA [Suspect]
     Active Substance: EMTRICITABINE\TENOFOVIR DISOPROXIL FUMARATE
     Dosage: 200/300
     Route: 048
     Dates: start: 20150107, end: 20171109
  3. TRUVADA [Suspect]
     Active Substance: EMTRICITABINE\TENOFOVIR DISOPROXIL FUMARATE
     Dosage: 200/300
     Route: 048
     Dates: start: 20171206

REACTIONS (1)
  - HIV test false positive [Recovered/Resolved]

NARRATIVE: CASE EVENT DATE: 20171102
